FAERS Safety Report 10782816 (Version 1)
Quarter: 2015Q1

REPORT INFORMATION
  Report Type: Spontaneous
  Country: US (occurrence: US)
  Receive Date: 20150210
  Receipt Date: 20150210
  Transmission Date: 20150721
  Serious: No
  Sender: FDA-Public Use
  Company Number: US-GLAXOSMITHKLINE-A1090837A

PATIENT

DRUGS (1)
  1. NICORETTE [Suspect]
     Active Substance: NICOTINE
     Indication: EX-TOBACCO USER
     Dates: start: 2014

REACTIONS (5)
  - Eructation [Unknown]
  - Nausea [Unknown]
  - Overdose [Unknown]
  - Palpitations [Unknown]
  - Flatulence [Unknown]

NARRATIVE: CASE EVENT DATE: 2014
